FAERS Safety Report 8814616 (Version 1)
Quarter: 2012Q4

REPORT INFORMATION
  Report Type: 
  Country: US (occurrence: US)
  Receive Date: 20120928
  Receipt Date: 20120928
  Transmission Date: 20130627
  Serious: Yes (Other)
  Sender: FDA-Public Use
  Company Number: US-SANOFI-AVENTIS-2012SA069018

PATIENT
  Age: 90 Year
  Sex: Female

DRUGS (1)
  1. MULTAQ [Suspect]
     Indication: ARRHYTHMIA PROPHYLAXIS
     Route: 048
     Dates: start: 201003, end: 20120715

REACTIONS (4)
  - Atrial fibrillation [Not Recovered/Not Resolved]
  - Dyspnoea [Not Recovered/Not Resolved]
  - Cough [Not Recovered/Not Resolved]
  - Unevaluable event [Not Recovered/Not Resolved]
